FAERS Safety Report 18545308 (Version 1)
Quarter: 2020Q4

REPORT INFORMATION
  Report Type: Spontaneous
  Country: FR (occurrence: FR)
  Receive Date: 20201125
  Receipt Date: 20201125
  Transmission Date: 20210114
  Serious: Yes (Hospitalization)
  Sender: FDA-Public Use
  Company Number: FR-JNJFOC-20201137604

PATIENT
  Age: 52 Year
  Sex: Female
  Weight: 53 kg

DRUGS (1)
  1. REMICADE [Suspect]
     Active Substance: INFLIXIMAB
     Indication: CROHN^S DISEASE
     Route: 042
     Dates: start: 20130109, end: 20190606

REACTIONS (1)
  - Hepatic fibrosis [Recovering/Resolving]

NARRATIVE: CASE EVENT DATE: 201705
